FAERS Safety Report 7929691-5 (Version None)
Quarter: 2011Q4

REPORT INFORMATION
  Report Type: 
  Country: None (occurrence: None)
  Receive Date: 20111121
  Receipt Date: 20111120
  Transmission Date: 20120403
  Serious: Yes (Other)
  Sender: FDA-Public Use
  Company Number: US-PFIZER INC-2011283399

PATIENT
  Sex: Male
  Weight: 83.9 kg

DRUGS (4)
  1. LAMICTAL [Concomitant]
     Dosage: UNK
  2. ACIPHEX [Concomitant]
     Indication: DYSPEPSIA
     Dosage: UNK, AS NEEDED
  3. CHANTIX [Suspect]
     Indication: SMOKING CESSATION THERAPY
     Dosage: 0.5 MG, 1X/DAY
     Route: 048
     Dates: start: 20110101, end: 20110101
  4. CHANTIX [Suspect]
     Dosage: 1 MG, 2X/DAY
     Route: 048
     Dates: start: 20110101

REACTIONS (2)
  - RENAL DISORDER [None]
  - BACK PAIN [None]
